FAERS Safety Report 7466538-8 (Version None)
Quarter: 2011Q2

REPORT INFORMATION
  Report Type: 
  Country: None (occurrence: None)
  Receive Date: 20110509
  Receipt Date: 20110428
  Transmission Date: 20111010
  Serious: Yes (Disabling)
  Sender: FDA-Public Use
  Company Number: GB-WATSON-2011-04317

PATIENT
  Age: 55 Year
  Sex: Female
  Weight: 70 kg

DRUGS (25)
  1. PACLITAXEL [Suspect]
     Dosage: 129 MG, UNK7
     Route: 042
     Dates: start: 20101216, end: 20101216
  2. PACLITAXEL [Suspect]
     Dosage: 129 MG, UNK2
     Route: 042
     Dates: start: 20101111, end: 20101111
  3. SODIUM CHLORIDE [Suspect]
     Indication: BREAST CANCER
     Dosage: 250 ML, UNK11
     Route: 042
     Dates: start: 20110106, end: 20110106
  4. DEXAMETHASONE [Suspect]
     Indication: PRODUCT USED FOR UNKNOWN INDICATION
     Dosage: 8 MG, UNK
     Route: 042
     Dates: start: 20101104
  5. PACLITAXEL [Suspect]
     Dosage: 129 MG, UNK8
     Route: 042
     Dates: start: 20101223, end: 20101223
  6. PACLITAXEL [Suspect]
     Dosage: 129 MG, UNK6
     Route: 042
     Dates: start: 20101209, end: 20101209
  7. PACLITAXEL [Suspect]
     Dosage: 129 MG, UNK3
     Route: 042
     Dates: start: 20101115, end: 20101115
  8. SODIUM CHLORIDE [Suspect]
     Dosage: 250 ML, UNK6
     Route: 042
     Dates: start: 20101202, end: 20101202
  9. SODIUM CHLORIDE [Suspect]
     Dosage: 100 ML, UNK2
     Route: 042
     Dates: start: 20101104
  10. SODIUM CHLORIDE [Suspect]
     Dosage: 250 ML, UNK5
     Route: 042
     Dates: start: 20101125, end: 20101125
  11. SODIUM CHLORIDE [Suspect]
     Dosage: 250 ML, UNK4
     Route: 042
     Dates: start: 20101115, end: 20101115
  12. SODIUM CHLORIDE [Suspect]
     Dosage: 250 ML, UNK1
     Route: 042
     Dates: start: 20101104, end: 20101104
  13. RANITIDINE HYDROCHLORIDE [Suspect]
     Indication: PRODUCT USED FOR UNKNOWN INDICATION
     Dosage: 50 MG, UNK
     Route: 042
     Dates: start: 20101104
  14. CHLORPHENIRAMINE MALEATE [Suspect]
     Indication: PRODUCT USED FOR UNKNOWN INDICATION
     Dosage: 10 MG, UNK
     Route: 042
     Dates: start: 20101104
  15. PACLITAXEL [Suspect]
     Dosage: 129 MG, UNK9
     Route: 042
     Dates: start: 20101230, end: 20101230
  16. PACLITAXEL [Suspect]
     Dosage: 129 MG, UNK5
     Route: 042
     Dates: start: 20101202, end: 20101202
  17. SODIUM CHLORIDE [Suspect]
     Dosage: 250 ML, UNK9
     Route: 042
     Dates: start: 20101223, end: 20101223
  18. SODIUM CHLORIDE [Suspect]
     Dosage: 250 ML, UNK8
     Route: 042
     Dates: start: 20101216, end: 20101216
  19. ALOXI [Suspect]
     Indication: PRODUCT USED FOR UNKNOWN INDICATION
     Dosage: 250 MG, UNK
     Route: 042
     Dates: start: 20101104
  20. PACLITAXEL [Suspect]
     Indication: BREAST CANCER
     Dosage: 129 MG, UNK10
     Route: 042
     Dates: start: 20110106, end: 20110106
  21. PACLITAXEL [Suspect]
     Dosage: 129 MG, UNK1
     Route: 042
     Dates: start: 20101104, end: 20101104
  22. SODIUM CHLORIDE [Suspect]
     Dosage: 250 ML, UNK10
     Route: 042
     Dates: start: 20101230, end: 20101230
  23. SODIUM CHLORIDE [Suspect]
     Dosage: 250 ML, UNK3
     Route: 042
     Dates: start: 20101111, end: 20101111
  24. PACLITAXEL [Suspect]
     Dosage: 129 MG, UNK4
     Route: 042
     Dates: start: 20101125, end: 20101125
  25. SODIUM CHLORIDE [Suspect]
     Dosage: 250 ML, UNK7
     Route: 042
     Dates: start: 20101209, end: 20101209

REACTIONS (1)
  - NEUROPATHY PERIPHERAL [None]
